FAERS Safety Report 7476066-1 (Version None)
Quarter: 2011Q2

REPORT INFORMATION
  Report Type: 
  Country: None (occurrence: None)
  Receive Date: 20110512
  Receipt Date: 20110506
  Transmission Date: 20111010
  Serious: Yes (Other)
  Sender: FDA-Public Use
  Company Number: CA-PFIZER INC-2011086444

PATIENT
  Age: 49 Year
  Sex: Male

DRUGS (2)
  1. LYRICA [Suspect]
     Indication: NEURALGIA
     Dosage: UNK MG, UNK
     Dates: start: 20110201
  2. VITAMIN B-12 [Concomitant]
     Dosage: UNK

REACTIONS (6)
  - INCREASED APPETITE [None]
  - HYPERGLYCAEMIA [None]
  - BLINDNESS [None]
  - AMNESIA [None]
  - WEIGHT INCREASED [None]
  - ASTHENIA [None]
